FAERS Safety Report 6159735 (Version 2)
Quarter: 2018Q1

REPORT INFORMATION
  Report Type: Spontaneous
  Country: BR (occurrence: BR)
  Receive Date: 20061101
  Receipt Date: 20180305
  Transmission Date: 20180509
  Serious: Yes (Other)
  Sender: FDA-Public Use
  Company Number: BR-JNJFOC-20061006425

PATIENT
  Age: 21 Year
  Sex: Female
  Weight: 85 kg

DRUGS (5)
  1. IMOSEC [Suspect]
     Active Substance: LOPERAMIDE
     Indication: ANTIBIOTIC PROPHYLAXIS
     Route: 048
     Dates: start: 2006
  2. DORFLEX [Concomitant]
     Active Substance: CAFFEINE\DIPYRONE\ORPHENADRINE
     Indication: ANTIBIOTIC PROPHYLAXIS
     Route: 048
  3. IMOSEC [Suspect]
     Active Substance: LOPERAMIDE
     Indication: ANTIBIOTIC PROPHYLAXIS
     Route: 048
     Dates: start: 20061026
  4. IMOSEC [Suspect]
     Active Substance: LOPERAMIDE
     Indication: ANTIBIOTIC PROPHYLAXIS
     Route: 048
     Dates: start: 20061025
  5. PEPSAMAR [Concomitant]
     Indication: HYPERCHLORHYDRIA
     Dates: start: 2006

REACTIONS (3)
  - Drug ineffective [Unknown]
  - Syncope [Recovered/Resolved]
  - Hypotension [Unknown]

NARRATIVE: CASE EVENT DATE: 20061025
